FAERS Safety Report 4544486-0 (Version None)
Quarter: 2005Q1

REPORT INFORMATION
  Report Type: 
  Country: None (occurrence: None)
  Receive Date: 20050103
  Receipt Date: 20050103
  Transmission Date: 20050727
  Serious: No
  Sender: FDA-Public Use
  Company Number: None

PATIENT
  Age: 11 Year
  Sex: Female
  Weight: 45.3597 kg

DRUGS (3)
  1. ZOLOFT [Suspect]
     Indication: MAJOR DEPRESSION
     Dosage: 25MG  BID  ORAL
     Route: 048
     Dates: start: 20040501, end: 20041231
  2. AMBIEN [Suspect]
     Indication: INSOMNIA
     Dosage: 10MG  QD  ORAL
     Route: 048
     Dates: start: 20040501, end: 20041231
  3. AMBIEN [Suspect]
     Indication: SELF-MEDICATION
     Dosage: 10MG  QD  ORAL
     Route: 048
     Dates: start: 20040501, end: 20041231

REACTIONS (2)
  - EDUCATIONAL PROBLEM [None]
  - MEDICATION ERROR [None]
